FAERS Safety Report 8903829 (Version 1)
Quarter: 2012Q4

REPORT INFORMATION
  Report Type: 
  Country: EG (occurrence: EG)
  Receive Date: 20121113
  Receipt Date: 20121113
  Transmission Date: 20130627
  Serious: Yes (Other)
  Sender: FDA-Public Use
  Company Number: EG-009507513-1211USA004278

PATIENT
  Age: 65 Year
  Sex: Male

DRUGS (1)
  1. ZOCOR [Suspect]
     Dosage: 40 mg, UNK
     Route: 048

REACTIONS (3)
  - Vascular graft [Unknown]
  - Drug dose omission [Unknown]
  - Coronary artery bypass [Unknown]
